FAERS Safety Report 7718927-1 (Version None)
Quarter: 2011Q3

REPORT INFORMATION
  Report Type: 
  Country: None (occurrence: None)
  Receive Date: 20110830
  Receipt Date: 20110816
  Transmission Date: 20111222
  Serious: Yes (Death, Hospitalization)
  Sender: FDA-Public Use
  Company Number: US-GLAXOSMITHKLINE-A0814595A

PATIENT
  Age: 84 Year
  Sex: Female
  Weight: 64.1 kg

DRUGS (10)
  1. PLAVIX [Concomitant]
  2. FLEXERIL [Concomitant]
  3. SYNTHROID [Concomitant]
  4. XANAX [Concomitant]
  5. GLIPIZIDE [Concomitant]
  6. AVANDIA [Suspect]
     Indication: TYPE 2 DIABETES MELLITUS
     Dosage: 8MG PER DAY
     Route: 048
     Dates: end: 20031219
  7. KLOR-CON [Concomitant]
  8. SINEMET [Concomitant]
  9. OCEAN [Concomitant]
  10. DESYREL [Concomitant]

REACTIONS (5)
  - CARDIAC FAILURE CONGESTIVE [None]
  - RENAL FAILURE [None]
  - ARTERIOSCLEROSIS CORONARY ARTERY [None]
  - COAGULOPATHY [None]
  - CEREBRAL INFARCTION [None]
